FAERS Safety Report 6482886-2 (Version None)
Quarter: 2009Q4

REPORT INFORMATION
  Report Type: 
  Country: None (occurrence: None)
  Receive Date: 20091204
  Receipt Date: 20091112
  Transmission Date: 20100525
  Serious: Yes (Hospitalization, Other)
  Sender: FDA-Public Use
  Company Number: AUR-APL-2009-01410

PATIENT
  Age: 55 Year
  Sex: Female

DRUGS (10)
  1. SERTRALINE HCL [Suspect]
     Indication: DEPRESSION
     Dosage: 100-200MG - DAILY
  2. PRAVASTATIN [Suspect]
  3. ARIPIPRAZOLE [Suspect]
     Indication: PSYCHOTIC DISORDER
     Dosage: 60MG-DAILY
  4. BETAMETHASONE [Suspect]
  5. LEVOTHYROXINE SODIUM [Suspect]
     Dosage: 0.05MG-DAILY
  6. LITHIUM CARBONATE [Suspect]
     Dosage: 625-900MG -DAILY
  7. LORAZEPAM [Suspect]
     Dosage: 2-4MG-DAILY
  8. MAGNESIUM [Suspect]
     Dosage: 7.5MG - DAILY
  9. OLANZAPINE [Suspect]
     Indication: PSYCHOTIC DISORDER
     Dosage: 10MG -DAILY
  10. QUETIAPINE FUMARATE [Suspect]
     Dosage: 200MG-DAILY

REACTIONS (10)
  - ANTIDEPRESSANT DRUG LEVEL ABOVE THERAPEUTIC [None]
  - DERMATITIS ALLERGIC [None]
  - EOSINOPHILIA [None]
  - FATIGUE [None]
  - HYPERLIPIDAEMIA [None]
  - PIGMENTATION DISORDER [None]
  - RASH PRURITIC [None]
  - SKIN LESION [None]
  - TREATMENT NONCOMPLIANCE [None]
  - WEIGHT INCREASED [None]
